FAERS Safety Report 7456017-6 (Version None)
Quarter: 2011Q2

REPORT INFORMATION
  Report Type: 
  Country: None (occurrence: None)
  Receive Date: 20110503
  Receipt Date: 20110427
  Transmission Date: 20111010
  Serious: Yes (Other)
  Sender: FDA-Public Use
  Company Number: US-MERCK-1101USA00246

PATIENT
  Sex: Female

DRUGS (3)
  1. BONIVA [Suspect]
     Route: 065
     Dates: start: 20060101, end: 20080101
  2. ALENDRONATE SODIUM [Suspect]
     Route: 048
     Dates: start: 20080101, end: 20090201
  3. FOSAMAX [Suspect]
     Route: 048
     Dates: start: 20030101, end: 20060101

REACTIONS (3)
  - FEMUR FRACTURE [None]
  - ORAL DISORDER [None]
  - LOW TURNOVER OSTEOPATHY [None]
